FAERS Safety Report 8130156-9 (Version None)
Quarter: 2012Q1

REPORT INFORMATION
  Report Type: 
  Country: None (occurrence: None)
  Receive Date: 20120210
  Receipt Date: 20120130
  Transmission Date: 20120608
  Serious: Yes (Hospitalization)
  Sender: FDA-Public Use
  Company Number: JP-ALLERGAN-1116946US

PATIENT
  Age: 47 Year
  Sex: Female
  Weight: 49.3 kg

DRUGS (3)
  1. EPINASTINE HYDROCHLORIDE [Suspect]
     Indication: EUSTACHIAN TUBE OBSTRUCTION
     Dosage: 20 MG, QD
     Route: 048
     Dates: start: 20110601, end: 20111217
  2. AZULFIDINE [Suspect]
     Indication: RHEUMATOID ARTHRITIS
     Dosage: 500 MG, QD
     Route: 048
     Dates: start: 20111122, end: 20111217
  3. CELECOXIB [Suspect]
     Indication: RHEUMATOID ARTHRITIS
     Dosage: 100 MG, QD
     Route: 048
     Dates: start: 20111108, end: 20111217

REACTIONS (1)
  - TOXIC SKIN ERUPTION [None]
